FAERS Safety Report 10483874 (Version 1)
Quarter: 2014Q3

REPORT INFORMATION
  Report Type: Spontaneous
  Country: US (occurrence: US)
  Receive Date: 20140930
  Receipt Date: 20140930
  Transmission Date: 20150326
  Serious: Yes (Other)
  Sender: FDA-Public Use
  Company Number: US-ELI_LILLY_AND_COMPANY-US201409007340

PATIENT
  Sex: Female

DRUGS (1)
  1. INSULIN LISPRO [Suspect]
     Active Substance: INSULIN LISPRO
     Indication: TYPE 1 DIABETES MELLITUS
     Dosage: UNK
     Route: 058
     Dates: start: 1997

REACTIONS (11)
  - Immune system disorder [Unknown]
  - Swollen tongue [Unknown]
  - Incorrect product storage [Unknown]
  - Pharyngeal oedema [Unknown]
  - Peripheral swelling [Unknown]
  - Anaphylactic reaction [Unknown]
  - Nausea [Unknown]
  - Oral mucosal blistering [Unknown]
  - Lip swelling [Unknown]
  - Paraesthesia oral [Unknown]
  - Scleroderma [Recovering/Resolving]
